FAERS Safety Report 17560964 (Version 2)
Quarter: 2020Q2

REPORT INFORMATION
  Report Type: Spontaneous
  Country: FR (occurrence: FR)
  Receive Date: 20200319
  Receipt Date: 20200413
  Transmission Date: 20200713
  Serious: Yes (Life-Threatening, Hospitalization)
  Sender: FDA-Public Use
  Company Number: FR-PFIZER INC-2020115963

PATIENT
  Age: 3 Year
  Sex: Male
  Weight: 14.7 kg

DRUGS (7)
  1. ADVILMED ENFANTS ET NOURRISSONS [Suspect]
     Active Substance: IBUPROFEN
     Indication: INFLUENZA LIKE ILLNESS
     Dosage: 3 DF, 1X/DAY
     Route: 048
     Dates: start: 20200103, end: 2020
  2. ADVILMED ENFANTS ET NOURRISSONS [Suspect]
     Active Substance: IBUPROFEN
     Indication: RHINITIS
  3. DOLIPRANE [Concomitant]
     Active Substance: ACETAMINOPHEN
     Indication: PYREXIA
     Dosage: UNK
  4. ADVILMED ENFANTS ET NOURRISSONS [Suspect]
     Active Substance: IBUPROFEN
     Indication: PYREXIA
  5. DOLIPRANE [Concomitant]
     Active Substance: ACETAMINOPHEN
     Indication: RHINITIS
  6. ADVILMED ENFANTS ET NOURRISSONS [Suspect]
     Active Substance: IBUPROFEN
     Indication: COUGH
  7. DOLIPRANE [Concomitant]
     Active Substance: ACETAMINOPHEN
     Indication: COUGH

REACTIONS (3)
  - Condition aggravated [Recovered/Resolved]
  - Pneumonia [Recovered/Resolved]
  - Infectious pleural effusion [Recovered/Resolved]

NARRATIVE: CASE EVENT DATE: 202001
